FAERS Safety Report 6089025-0 (Version None)
Quarter: 2009Q1

REPORT INFORMATION
  Report Type: 
  Country: None (occurrence: None)
  Receive Date: 20090224
  Receipt Date: 20090218
  Transmission Date: 20090719
  Serious: Yes (Disabling)
  Sender: FDA-Public Use
  Company Number: A0762050A

PATIENT
  Age: 46 Year
  Sex: Male

DRUGS (2)
  1. RYTHMOL SR [Suspect]
     Dosage: 325MG PER DAY
     Route: 048
  2. TYLENOL [Concomitant]

REACTIONS (2)
  - HEADACHE [None]
  - PRODUCT QUALITY ISSUE [None]
